FAERS Safety Report 8160301-0 (Version None)
Quarter: 2012Q1

REPORT INFORMATION
  Report Type: 
  Country: None (occurrence: None)
  Receive Date: 20120223
  Receipt Date: 20120223
  Transmission Date: 20120608
  Serious: Yes (Other)
  Sender: FDA-Public Use
  Company Number: None

PATIENT
  Sex: Female
  Weight: 99.79 kg

DRUGS (1)
  1. CYMBALTA [Suspect]
     Indication: DEPRESSION
     Dosage: 60.0 MG
     Route: 048
     Dates: start: 20060901, end: 20120101

REACTIONS (18)
  - VERTIGO [None]
  - CHILLS [None]
  - CONVERSION DISORDER [None]
  - SLEEP TERROR [None]
  - APPARENT DEATH [None]
  - HEART RATE ABNORMAL [None]
  - BONE PAIN [None]
  - FEAR [None]
  - PARANOIA [None]
  - HYPERHIDROSIS [None]
  - VISION BLURRED [None]
  - FEELING COLD [None]
  - BIPOLAR DISORDER [None]
  - PAIN [None]
  - ABNORMAL DREAMS [None]
  - INSOMNIA [None]
  - ABNORMAL BEHAVIOUR [None]
  - WITHDRAWAL SYNDROME [None]
